FAERS Safety Report 19507491 (Version 2)
Quarter: 2021Q3

REPORT INFORMATION
  Report Type: Spontaneous
  Country: GB (occurrence: GB)
  Receive Date: 20210708
  Receipt Date: 20210715
  Transmission Date: 20211014
  Serious: Yes (Hospitalization, Disabling, Other)
  Sender: FDA-Public Use
  Company Number: GB-STRIDES ARCOLAB LIMITED-2010SP000091

PATIENT
  Age: 70 Year
  Sex: Male

DRUGS (20)
  1. WARFARIN [Interacting]
     Active Substance: WARFARIN
     Indication: FACTOR V DEFICIENCY
     Dosage: UNK
     Route: 065
  2. VITAMIN K [Concomitant]
     Active Substance: PHYTONADIONE
     Indication: PRODUCT USED FOR UNKNOWN INDICATION
     Dosage: UNK
     Route: 065
  3. METRONIDAZOLE. [Suspect]
     Active Substance: METRONIDAZOLE
     Indication: CHALAZION
     Dosage: 400 MILLIGRAM TABLET, TID
     Route: 048
  4. TEICOPLANIN [Interacting]
     Active Substance: TEICOPLANIN
     Indication: CHALAZION
     Dosage: 400 MG, QD
     Route: 030
  5. METRONIDAZOLE. [Interacting]
     Active Substance: METRONIDAZOLE
     Indication: ANTIBIOTIC THERAPY
     Dosage: UNK
     Route: 065
  6. CIPROFLOXACIN. [Interacting]
     Active Substance: CIPROFLOXACIN
     Indication: CHALAZION
     Dosage: 750 MG, BID
     Route: 048
  7. CIPROFLOXACIN. [Interacting]
     Active Substance: CIPROFLOXACIN
     Indication: CELLULITIS
     Dosage: UNK
     Route: 065
  8. ASPIRIN [ACETYLSALICYLIC ACID] [Interacting]
     Active Substance: ASPIRIN
     Indication: ANTIPLATELET THERAPY
     Dosage: 75 MILLIGRAM, QD
     Route: 065
  9. MEROPENEM. [Interacting]
     Active Substance: MEROPENEM
     Indication: CHALAZION
     Dosage: 2 G, BID
     Route: 042
  10. ERYTHROMYCIN. [Interacting]
     Active Substance: ERYTHROMYCIN
     Indication: CHALAZION
     Dosage: 250 MILLIGRAM, QID
     Route: 048
  11. CLOPIDOGREL [Interacting]
     Active Substance: CLOPIDOGREL BISULFATE
     Indication: CHEST PAIN
     Dosage: 300 MG, QD
     Route: 048
  12. ASPIRIN [ACETYLSALICYLIC ACID] [Interacting]
     Active Substance: ASPIRIN
     Indication: CHEST PAIN
     Dosage: PATIENT RECEIVED 300MG ON ADMITTANCE AND STARTED ON A 75MG/DAY REGIMEN
     Route: 065
  13. MEROPENEM. [Interacting]
     Active Substance: MEROPENEM
     Indication: CELLULITIS
     Dosage: 4 MILLIGRAM PER DAY
     Route: 030
  14. TEICOPLANIN [Interacting]
     Active Substance: TEICOPLANIN
     Indication: CELLULITIS
  15. ERYTHROMYCIN. [Interacting]
     Active Substance: ERYTHROMYCIN
     Indication: CELLULITIS
  16. CIPROFLOXACIN. [Interacting]
     Active Substance: CIPROFLOXACIN
     Indication: ANTIBIOTIC THERAPY
  17. MEROPENEM. [Interacting]
     Active Substance: MEROPENEM
     Indication: ANTIBIOTIC THERAPY
  18. CLOPIDOGREL [Interacting]
     Active Substance: CLOPIDOGREL BISULFATE
     Indication: ANTIPLATELET THERAPY
     Dosage: 75 MILLIGRAM DAILY
     Route: 048
  19. WARFARIN [Interacting]
     Active Substance: WARFARIN
     Indication: PULMONARY EMBOLISM
     Dosage: UNK
     Route: 065
  20. TEICOPLANIN [Interacting]
     Active Substance: TEICOPLANIN
     Indication: ANTIBIOTIC THERAPY
     Dosage: UNK
     Route: 065

REACTIONS (13)
  - Off label use [Unknown]
  - Intraocular pressure increased [Not Recovered/Not Resolved]
  - International normalised ratio increased [Recovered/Resolved]
  - Headache [Unknown]
  - Pyrexia [Unknown]
  - Potentiating drug interaction [Recovered/Resolved]
  - Drug ineffective for unapproved indication [Unknown]
  - Coagulation time prolonged [Unknown]
  - Hyphaema [Recovered/Resolved]
  - Decreased appetite [Unknown]
  - Visual acuity reduced [Unknown]
  - Nausea [Unknown]
  - Eye pain [Recovered/Resolved]
